FAERS Safety Report 18391112 (Version 1)
Quarter: 2020Q4

REPORT INFORMATION
  Report Type: Spontaneous
  Country: AU (occurrence: AU)
  Receive Date: 20201015
  Receipt Date: 20201015
  Transmission Date: 20210114
  Serious: Yes (Other)
  Sender: FDA-Public Use
  Company Number: AU-ROCHE-2683187

PATIENT
  Sex: Female

DRUGS (1)
  1. KADCYLA [Suspect]
     Active Substance: ADO-TRASTUZUMAB EMTANSINE
     Indication: ILL-DEFINED DISORDER
     Route: 065

REACTIONS (3)
  - Therapeutic product effect incomplete [Unknown]
  - Staphylococcal infection [Unknown]
  - Implant site extravasation [Unknown]
